FAERS Safety Report 8871342 (Version 1)
Quarter: 2012Q4

REPORT INFORMATION
  Report Type: 
  Country: US (occurrence: US)
  Receive Date: 20121026
  Receipt Date: 20121026
  Transmission Date: 20130627
  Serious: No
  Sender: FDA-Public Use
  Company Number: US-AMGEN-USASP2012048194

PATIENT
  Sex: Female
  Weight: 95.24 kg

DRUGS (12)
  1. ENBREL [Suspect]
     Indication: PRODUCT USED FOR UNKNOWN INDICATION
     Dosage: 50 mg, 2 times/wk
     Route: 058
  2. CELEBREX [Concomitant]
     Dosage: 100 mg, UNK
  3. ATARAX                             /00058401/ [Concomitant]
     Dosage: 10 mg/5ML
  4. K-DUR [Concomitant]
     Dosage: 20 mEq, CR
  5. CLONAZEPAM [Concomitant]
     Dosage: 1 mg, UNK
  6. SIMVASTATIN [Concomitant]
     Dosage: 10 mg, UNK
  7. CLOBETASOL [Concomitant]
     Dosage: 0.05 %, UNK
  8. INDAPAMIDE [Concomitant]
     Dosage: 2.5 mg, UNK
  9. LOSARTAN POTASSIUM [Concomitant]
     Dosage: 100 mg, UNK
  10. CALCIUM [Concomitant]
     Dosage: 500 UNK, UNK
  11. TRIAMCINOLON                       /00031901/ [Concomitant]
     Dosage: 0.05 %, UNK
  12. IPRATROPIUM [Concomitant]
     Dosage: UNK

REACTIONS (5)
  - Injection site reaction [Unknown]
  - Eye infection [Unknown]
  - Blood glucose increased [Unknown]
  - Injection site erythema [Unknown]
  - Injection site pruritus [Unknown]
